FAERS Safety Report 15947604 (Version 1)
Quarter: 2019Q1

REPORT INFORMATION
  Report Type: Spontaneous
  Country: FR (occurrence: FR)
  Receive Date: 20190212
  Receipt Date: 20190212
  Transmission Date: 20190417
  Serious: Yes (Hospitalization, Other)
  Sender: FDA-Public Use
  Company Number: FR-AUROBINDO-AUR-APL-2019-007279

PATIENT

DRUGS (4)
  1. ROPIVACAINE HYDROCHLORIDE MONOHYDRATE [Suspect]
     Active Substance: ROPIVACAINE HYDROCHLORIDE
     Indication: ANAESTHESIA
     Dosage: 100 MILLIGRAM, IN TOTAL
     Route: 008
     Dates: start: 20180510, end: 20180510
  2. AMOXICILLIN. [Suspect]
     Active Substance: AMOXICILLIN
     Indication: ANTIBIOTIC PROPHYLAXIS
     Dosage: 1 DOSAGE FORM, ONCE A DAY
     Route: 042
     Dates: start: 20180510, end: 20180510
  3. CLAVULANIC ACID [Suspect]
     Active Substance: CLAVULANIC ACID
     Indication: ANTIBIOTIC PROPHYLAXIS
     Dosage: 1 DOSAGE FORM, IN TOTAL
     Route: 042
     Dates: start: 20180510, end: 20180510
  4. MEPIVACAINE HYDROCHLORIDE. [Suspect]
     Active Substance: MEPIVACAINE HYDROCHLORIDE
     Indication: ANAESTHESIA
     Dosage: 100 MILLIGRAM, IN TOTAL
     Route: 008
     Dates: start: 20180510, end: 20180510

REACTIONS (3)
  - Conduction disorder [Recovered/Resolved]
  - Circulatory collapse [Recovered/Resolved]
  - Bradycardia [Recovered/Resolved]

NARRATIVE: CASE EVENT DATE: 20180510
